FAERS Safety Report 5335746-4 (Version None)
Quarter: 2007Q1

REPORT INFORMATION
  Report Type: 
  Country: None (occurrence: None)
  Receive Date: 20070322
  Receipt Date: 20061208
  Transmission Date: 20070707
  Serious: No
  Sender: FDA-Public Use
  Company Number: 2006US002852

PATIENT
  Age: 82 Year
  Sex: Male

DRUGS (10)
  1. VESICARE [Suspect]
     Indication: HYPERTONIC BLADDER
     Dosage: SEE IMAGE
     Route: 048
     Dates: start: 20060101
  2. VESICARE [Suspect]
     Indication: HYPERTONIC BLADDER
     Dosage: SEE IMAGE
     Route: 048
     Dates: start: 20060101
  3. CLONIDINE [Concomitant]
  4. AVAPRO [Concomitant]
  5. ISORBIDE (ISOSORBIDE DINITRATE) [Concomitant]
  6. PLENDIL [Concomitant]
  7. NEXIUM [Concomitant]
  8. VALIUM (SODIUM BENZOATE, DIAZEPAM, BENZYL ALCOHOL) [Concomitant]
  9. DIDRONEL [Concomitant]
  10. ZETIA [Concomitant]

REACTIONS (1)
  - DRUG INEFFECTIVE [None]
